FAERS Safety Report 19638222 (Version 1)
Quarter: 2021Q3

REPORT INFORMATION
  Report Type: Spontaneous
  Country: HR (occurrence: HR)
  Receive Date: 20210730
  Receipt Date: 20210730
  Transmission Date: 20211014
  Serious: Yes (Hospitalization, Other)
  Sender: FDA-Public Use
  Company Number: HR-IPCA LABORATORIES LIMITED-IPC-2021-HR-001414

PATIENT

DRUGS (16)
  1. CALCIUM CARBONATE. [Concomitant]
     Active Substance: CALCIUM CARBONATE
     Indication: PRODUCT USED FOR UNKNOWN INDICATION
     Dosage: 1 GRAM, QD
     Route: 065
  2. SIMVASTATIN. [Interacting]
     Active Substance: SIMVASTATIN
     Dosage: 40 MILLIGRAM
     Route: 065
  3. SIMVASTATIN/FENOFIBRATE [Interacting]
     Active Substance: FENOFIBRATE\SIMVASTATIN
     Indication: DYSLIPIDAEMIA
     Dosage: 145 MILLIGRAM
     Route: 065
  4. PANTOPRAZOLE [Interacting]
     Active Substance: PANTOPRAZOLE
     Indication: PRODUCT USED FOR UNKNOWN INDICATION
     Dosage: 40 MILLIGRAM, QD
     Route: 065
  5. PREDNISONE. [Suspect]
     Active Substance: PREDNISONE
     Indication: PRODUCT USED FOR UNKNOWN INDICATION
     Dosage: 60 MILLIGRAM, QD
     Route: 065
  6. TRIMETHOPRIME + SULFAMETHOXAZOLE [Interacting]
     Active Substance: SULFAMETHOXAZOLE\TRIMETHOPRIM
     Dosage: 80 MILLIGRAM, BID (TMP)
     Route: 065
  7. CEFTRIAXONE. [Interacting]
     Active Substance: CEFTRIAXONE
     Indication: PRODUCT USED FOR UNKNOWN INDICATION
     Dosage: 1 GRAM, QD
     Route: 042
  8. DICLOFENAC [Interacting]
     Active Substance: DICLOFENAC
     Indication: MIGRAINE
     Dosage: 150 MILLIGRAM, QD
     Route: 065
  9. PROPRANOLOL [Interacting]
     Active Substance: PROPRANOLOL HYDROCHLORIDE
     Dosage: 20 MILLIGRAM, QD
     Route: 065
  10. SIMVASTATIN/FENOFIBRATE [Interacting]
     Active Substance: FENOFIBRATE\SIMVASTATIN
     Dosage: 20 MILLIGRAM
     Route: 065
  11. CALCITRIOL. [Concomitant]
     Active Substance: CALCITRIOL
     Indication: PRODUCT USED FOR UNKNOWN INDICATION
     Dosage: 0.25 MICROGRAM (EVERY OTHER DAY)
     Route: 065
  12. FUROSEMIDE. [Suspect]
     Active Substance: FUROSEMIDE
     Indication: PRODUCT USED FOR UNKNOWN INDICATION
     Dosage: 40 MILLIGRAM, QD
     Route: 065
  13. ATORVASTATIN [Interacting]
     Active Substance: ATORVASTATIN
     Indication: DYSLIPIDAEMIA
     Dosage: 20 MILLIGRAM, QD
     Route: 065
  14. TRIMETHOPRIME + SULFAMETHOXAZOLE [Interacting]
     Active Substance: SULFAMETHOXAZOLE\TRIMETHOPRIM
     Indication: URINARY TRACT INFECTION
     Dosage: 400 MILLIGRAM, BID (SMX DOSAGE)
     Route: 065
  15. SIMVASTATIN. [Interacting]
     Active Substance: SIMVASTATIN
     Indication: DYSLIPIDAEMIA
     Dosage: 20 MILLIGRAM
     Route: 065
  16. DICLOFENAC [Interacting]
     Active Substance: DICLOFENAC
     Dosage: 200 MILLIGRAM, QD
     Route: 065

REACTIONS (6)
  - Drug-induced liver injury [Unknown]
  - Nephropathy toxic [Unknown]
  - Drug interaction [Unknown]
  - Acute kidney injury [Unknown]
  - Hepatotoxicity [Unknown]
  - Myopathy toxic [Unknown]
